FAERS Safety Report 24689216 (Version 2)
Quarter: 2025Q1

REPORT INFORMATION
  Report Type: Spontaneous
  Country: US (occurrence: US)
  Receive Date: 20241203
  Receipt Date: 20250304
  Transmission Date: 20250408
  Serious: No
  Sender: CELLTRION
  Company Number: US-CELLTRION INC.-2024US024264

PATIENT

DRUGS (2)
  1. YUFLYMA [Suspect]
     Active Substance: ADALIMUMAB-AATY
     Indication: Ankylosing spondylitis
     Dates: start: 20240918
  2. CELEBREX [Concomitant]
     Active Substance: CELECOXIB

REACTIONS (3)
  - Wrong technique in product usage process [Recovered/Resolved]
  - Exposure via skin contact [Not Recovered/Not Resolved]
  - Accidental exposure to product [Recovered/Resolved]

NARRATIVE: CASE EVENT DATE: 20240918
